FAERS Safety Report 19801520 (Version 2)
Quarter: 2021Q3

REPORT INFORMATION
  Report Type: Report from Study
  Country: None (occurrence: BR)
  Receive Date: 20210907
  Receipt Date: 20210923
  Transmission Date: 20211014
  Serious: Yes (Life-Threatening, Hospitalization, Other)
  Sender: FDA-Public Use
  Company Number: BR-ABBVIE-21K-020-4069554-00

PATIENT
  Age: 72 Year
  Sex: Female
  Weight: 74 kg

DRUGS (12)
  1. LOSARTAN. [Concomitant]
     Active Substance: LOSARTAN
     Indication: HYPERTENSION
     Dosage: UNSPECIFIC DOSE
  2. SKYRIZI [Suspect]
     Active Substance: RISANKIZUMAB-RZAA
     Indication: PSORIASIS
     Route: 058
     Dates: start: 20201101
  3. RABEPRAZOLE [Concomitant]
     Active Substance: RABEPRAZOLE
     Indication: PROPHYLAXIS
     Dosage: UNSPECIFIC DOSE
  4. METFORMIN [Concomitant]
     Active Substance: METFORMIN HYDROCHLORIDE
     Indication: DIABETES MELLITUS
     Dosage: UNSPECIFIC DOSE
  5. SERETIDE [Concomitant]
     Active Substance: FLUTICASONE PROPIONATE\SALMETEROL XINAFOATE
     Indication: CHRONIC OBSTRUCTIVE PULMONARY DISEASE
     Dosage: UNSPECIFIC DOSE
  6. LOSARTAN. [Concomitant]
     Active Substance: LOSARTAN
     Indication: HYPERTENSION
     Dosage: UNSPECIFIC DOSE
  7. LEVOID [Concomitant]
     Active Substance: LEVOTHYROXINE
     Indication: THYROID DISORDER
     Dosage: UNSPECIFIC DOSE
  8. COVID?19 VACCINE [Concomitant]
     Indication: COVID-19 IMMUNISATION
     Dosage: SINOVAC ?UNSPECIFIC DOSE
     Route: 030
  9. SIMVASTATIN. [Concomitant]
     Active Substance: SIMVASTATIN
     Indication: CARDIAC DISORDER
     Dosage: UNSPECIFIC DOSE
  10. GLICLAZIDE [Concomitant]
     Active Substance: GLICLAZIDE
     Indication: DIABETES MELLITUS
     Dosage: UNSPECIFIC DOSE
  11. SPIRONOLACTONE. [Concomitant]
     Active Substance: SPIRONOLACTONE
     Indication: DIURETIC THERAPY
     Dosage: UNSPECIFIC DOSE
  12. COVID?19 VACCINE [Concomitant]
     Dosage: SINOVAC ?UNSPECIFIC DOSE
     Route: 030

REACTIONS (5)
  - Cardiovascular disorder [Recovered/Resolved]
  - Myocardial ischaemia [Unknown]
  - Seizure [Recovered/Resolved]
  - COVID-19 [Recovered/Resolved]
  - Dry skin [Unknown]

NARRATIVE: CASE EVENT DATE: 20210820
